FAERS Safety Report 5329960-1 (Version None)
Quarter: 2007Q2

REPORT INFORMATION
  Report Type: 
  Country: None (occurrence: None)
  Receive Date: 20070521
  Receipt Date: 20070510
  Transmission Date: 20071010
  Serious: Yes (Other)
  Sender: FDA-Public Use
  Company Number: GB-ASTRAZENECA-2007GB01007

PATIENT
  Age: 10589 Day
  Sex: Female

DRUGS (2)
  1. ZOLADEX [Suspect]
     Indication: UTERINE LEIOMYOMA
     Route: 058
     Dates: start: 20061215
  2. CONTRACEPTIVE PILL [Concomitant]

REACTIONS (3)
  - DRUG INEFFECTIVE [None]
  - METRORRHAGIA [None]
  - UTERINE LEIOMYOMA [None]
